FAERS Safety Report 13214558 (Version 3)
Quarter: 2017Q1

REPORT INFORMATION
  Report Type: Spontaneous
  Country: JP (occurrence: JP)
  Receive Date: 20170210
  Receipt Date: 20170302
  Transmission Date: 20170428
  Serious: Yes (Life-Threatening, Other)
  Sender: FDA-Public Use
  Company Number: JP-MALLINCKRODT-T201700445

PATIENT
  Age: 70 Year
  Sex: Male
  Weight: 60 kg

DRUGS (17)
  1. METHADONE [Suspect]
     Active Substance: METHADONE HYDROCHLORIDE
     Dosage: 10 MG DAILY DOSE
     Route: 048
     Dates: start: 20161220, end: 20161227
  2. METHADONE [Suspect]
     Active Substance: METHADONE HYDROCHLORIDE
     Dosage: 5 MG (15 MG DAILY DOSE)
     Route: 048
     Dates: start: 20170130, end: 20170205
  3. THYRADIN S [Concomitant]
     Active Substance: LEVOTHYROXINE SODIUM
     Dosage: 175 MCG, UNK
     Route: 050
     Dates: start: 20161117, end: 20170210
  4. METHYCOBAL [Concomitant]
     Active Substance: METHYLCOBALAMIN
     Dosage: 1500 MCG, UNK
     Route: 050
     Dates: start: 20161117, end: 20170210
  5. GLUCONSAN K [Concomitant]
     Dosage: 6 G, UNK
     Route: 050
     Dates: start: 20161117, end: 20170210
  6. LOXOPROFEN NA [Concomitant]
     Active Substance: LOXOPROFEN SODIUM
     Dosage: 180 MG, UNK
     Route: 050
     Dates: start: 20161117, end: 20170210
  7. LYRICA [Concomitant]
     Active Substance: PREGABALIN
     Dosage: 150 MG, UNK
     Route: 050
     Dates: start: 20161117, end: 20170210
  8. TS-1 [Concomitant]
     Active Substance: GIMERACIL\OTERACIL\TEGAFUR
     Dosage: 120 MG, UNK
     Route: 050
     Dates: start: 20161117, end: 20170210
  9. METHADONE [Suspect]
     Active Substance: METHADONE HYDROCHLORIDE
     Dosage: 5 MG (10 MG DAILY DOSE)
     Route: 048
     Dates: start: 20170123, end: 20170129
  10. NEXIUM [Concomitant]
     Active Substance: ESOMEPRAZOLE MAGNESIUM
     Dosage: 20 MG, UNK
     Route: 050
     Dates: start: 20161117, end: 20170210
  11. METHADONE [Suspect]
     Active Substance: METHADONE HYDROCHLORIDE
     Indication: CANCER PAIN
     Dosage: 20 MG DAILY DOSE
     Route: 048
     Dates: start: 20161206, end: 20161212
  12. GLYCYRON [Concomitant]
     Active Substance: AMMONIUM GLYCYRRHIZATE\GLYCINE\METHIONINE
     Dosage: 6 DF, UNK
     Route: 050
     Dates: start: 20161117, end: 20161228
  13. NEUROVITAN [Concomitant]
     Active Substance: VITAMINS
     Dosage: 3 DF, UNK
     Route: 050
     Dates: start: 20161117, end: 20170210
  14. METHADONE [Suspect]
     Active Substance: METHADONE HYDROCHLORIDE
     Dosage: 30 MG DAILY DOSE
     Route: 048
     Dates: start: 20161213, end: 20161217
  15. VESICARE [Concomitant]
     Active Substance: SOLIFENACIN SUCCINATE
     Dosage: 10 MG, UNK
     Route: 050
     Dates: start: 20161117, end: 20170210
  16. ACOFIDE [Concomitant]
     Active Substance: ACOTIAMIDE HYDROCHLORIDE
     Dosage: 300 MG, UNK
     Route: 050
     Dates: start: 20161117, end: 20170210
  17. AMLODIPINE [Concomitant]
     Active Substance: AMLODIPINE BESYLATE
     Dosage: 2.5 MG, UNK
     Route: 050
     Dates: start: 20161117, end: 20170210

REACTIONS (4)
  - Hepatic congestion [Recovering/Resolving]
  - Respiratory depression [Recovered/Resolved]
  - Somnolence [Recovered/Resolved]
  - Oedema [Recovered/Resolved]

NARRATIVE: CASE EVENT DATE: 20161213
